FAERS Safety Report 24696196 (Version 1)
Quarter: 2024Q4

REPORT INFORMATION
  Report Type: Spontaneous
  Country: US (occurrence: US)
  Receive Date: 20241204
  Receipt Date: 20241204
  Transmission Date: 20250114
  Serious: Yes (Other)
  Sender: THE MENTHOLATUM COMPANY
  Company Number: US-The Mentholatum Company-2166446

PATIENT

DRUGS (1)
  1. ROHTO COOL MAX [Suspect]
     Active Substance: NAPHAZOLINE HYDROCHLORIDE\POLYSORBATE 80
     Indication: Ocular hyperaemia

REACTIONS (1)
  - Eye irritation [Unknown]
